FAERS Safety Report 6250272-6 (Version None)
Quarter: 2009Q2

REPORT INFORMATION
  Report Type: 
  Country: None (occurrence: None)
  Receive Date: 20090626
  Receipt Date: 20090626
  Transmission Date: 20091009
  Serious: Yes (Death, Hospitalization)
  Sender: FDA-Public Use
  Company Number: None

PATIENT
  Age: 55 Year
  Sex: Male
  Weight: 78.5 kg

DRUGS (7)
  1. PROPYL-THIOURACIL [Suspect]
     Indication: HYPERTHYROIDISM
     Dosage: 100 MG QDAY PO
     Route: 048
     Dates: start: 20090101, end: 20090330
  2. INTERFERON [Suspect]
     Indication: HEPATITIS C
     Dosage: 3 M.L. 3X/WEEK IM
     Route: 030
  3. GABAPENTIN [Concomitant]
  4. MS CONTIN [Concomitant]
  5. ZOSYN [Concomitant]
  6. LEVAQUIN [Concomitant]
  7. PRILOSEC [Concomitant]

REACTIONS (4)
  - DYSPNOEA [None]
  - PULMONARY RENAL SYNDROME [None]
  - SKIN NECROSIS [None]
  - VASCULITIS NECROTISING [None]
